FAERS Safety Report 17111267 (Version 1)
Quarter: 2019Q4

REPORT INFORMATION
  Report Type: Spontaneous
  Country: US (occurrence: US)
  Receive Date: 20191204
  Receipt Date: 20191204
  Transmission Date: 20200122
  Serious: Yes (Life-Threatening, Hospitalization)
  Sender: FDA-Public Use
  Company Number: US-PFIZER INC-2019520678

PATIENT
  Age: 3 Day
  Sex: Male
  Weight: 2.65 kg

DRUGS (10)
  1. FOSPHENYTOIN SODIUM. [Suspect]
     Active Substance: FOSPHENYTOIN SODIUM
     Dosage: 5 MG/KG, UNK (46 HOURS OF LIFE)
     Route: 042
  2. FOSPHENYTOIN SODIUM. [Suspect]
     Active Substance: FOSPHENYTOIN SODIUM
     Dosage: 2.5 MG/KG, UNK (58 HOURS OF LIFE)
     Route: 042
  3. LORAZEPAM. [Concomitant]
     Active Substance: LORAZEPAM
     Indication: SEIZURE
     Dosage: 0.1 MG/KG, UNK (3 DOSES)
  4. FOSPHENYTOIN SODIUM. [Suspect]
     Active Substance: FOSPHENYTOIN SODIUM
     Indication: SEIZURE
     Dosage: 20 MG/KG, UNK (OVER 30MINUTES AT 37 HOURS OF LIFE)
     Route: 042
  5. CALCIUM [Concomitant]
     Active Substance: CALCIUM
     Indication: BLOOD CALCIUM DECREASED
     Dosage: UNK (BOLUS)
  6. FOSPHENYTOIN SODIUM. [Suspect]
     Active Substance: FOSPHENYTOIN SODIUM
     Dosage: 2.5 MG/KG, UNK (70 HOURS OF LIFE)
     Route: 042
  7. PHENOBARBITAL. [Concomitant]
     Active Substance: PHENOBARBITAL
     Indication: SEIZURE
     Dosage: 20 MG/KG, UNK
  8. ACICLOVIR [Concomitant]
     Active Substance: ACYCLOVIR
     Indication: ANTIBIOTIC THERAPY
     Dosage: UNK
  9. MAGNESIUM [Concomitant]
     Active Substance: MAGNESIUM
     Indication: BLOOD MAGNESIUM DECREASED
     Dosage: UNK (CORRECTIVE DOSE)
  10. CALCIUM [Concomitant]
     Active Substance: CALCIUM
     Indication: ELECTROCARDIOGRAM ABNORMAL

REACTIONS (7)
  - Urine output decreased [Recovered/Resolved]
  - Circulatory collapse [Recovered/Resolved]
  - Toxicity to various agents [Recovered/Resolved]
  - Hypotension [Recovered/Resolved]
  - Bradycardia [Recovered/Resolved]
  - Hyperglycaemia [Recovered/Resolved]
  - Calcium ionised decreased [Recovered/Resolved]
